FAERS Safety Report 4420119-9 (Version None)
Quarter: 2004Q3

REPORT INFORMATION
  Report Type: 
  Country: None (occurrence: None)
  Receive Date: 20040809
  Receipt Date: 20040322
  Transmission Date: 20050211
  Serious: No
  Sender: FDA-Public Use
  Company Number: US-GLAXOSMITHKLINE-A0503872A

PATIENT
  Age: 38 Year
  Sex: Female

DRUGS (1)
  1. PAXIL [Suspect]
     Dosage: 60MG PER DAY
     Route: 048

REACTIONS (18)
  - ABNORMAL DREAMS [None]
  - CONFUSIONAL STATE [None]
  - DEMENTIA [None]
  - DISTURBANCE IN ATTENTION [None]
  - DRUG WITHDRAWAL SYNDROME [None]
  - DYSARTHRIA [None]
  - ELECTRIC SHOCK [None]
  - GAIT DISTURBANCE [None]
  - HEADACHE [None]
  - HYPERACUSIS [None]
  - HYPERAESTHESIA [None]
  - INSOMNIA [None]
  - MOOD SWINGS [None]
  - NIGHT SWEATS [None]
  - PANIC ATTACK [None]
  - PHOTOSENSITIVITY REACTION [None]
  - REFLEXES ABNORMAL [None]
  - WEIGHT INCREASED [None]
